FAERS Safety Report 6597883-6 (Version None)
Quarter: 2010Q1

REPORT INFORMATION
  Report Type: 
  Country: None (occurrence: None)
  Receive Date: 20100223
  Receipt Date: 20091208
  Transmission Date: 20100710
  Serious: No
  Sender: FDA-Public Use
  Company Number: US-ALLERGAN-0916850US

PATIENT

DRUGS (2)
  1. BOTOX COSMETIC [Suspect]
     Indication: SKIN WRINKLING
     Dosage: UNK
     Route: 030
     Dates: start: 20091001, end: 20091001
  2. GENERAL ANESTHESIA [Suspect]

REACTIONS (2)
  - DRUG INTERACTION [None]
  - EYELID PTOSIS [None]
